FAERS Safety Report 8509213-0 (Version None)
Quarter: 2012Q3

REPORT INFORMATION
  Report Type: 
  Country: None (occurrence: None)
  Receive Date: 20120713
  Receipt Date: 20120703
  Transmission Date: 20120928
  Serious: Yes (Hospitalization)
  Sender: FDA-Public Use
  Company Number: JP-ACTELION-A-CH2012-67632

PATIENT
  Sex: Female

DRUGS (5)
  1. LAMOTRIGINE [Concomitant]
  2. BRAZAVES [Suspect]
     Indication: NIEMANN-PICK DISEASE
     Dosage: 100 MG, BID
     Route: 048
     Dates: start: 20120608
  3. TOPIRAMATE [Concomitant]
  4. VALPROATE SODIUM [Concomitant]
  5. OXYGEN [Concomitant]

REACTIONS (3)
  - PYREXIA [None]
  - BRONCHOPNEUMONIA [None]
  - CHEST X-RAY ABNORMAL [None]
